FAERS Safety Report 21724781 (Version 2)
Quarter: 2022Q4

REPORT INFORMATION
  Report Type: Report from Study
  Country: MX (occurrence: MX)
  Receive Date: 20221214
  Receipt Date: 20221222
  Transmission Date: 20230113
  Serious: Yes (Other)
  Sender: FDA-Public Use
  Company Number: MX-002147023-NVSC2022MX254136

PATIENT
  Sex: Female
  Weight: 80 kg

DRUGS (3)
  1. KISQALI [Suspect]
     Active Substance: RIBOCICLIB
     Indication: Breast cancer
     Dosage: UNK
     Route: 048
     Dates: start: 20220401
  2. KISQALI [Suspect]
     Active Substance: RIBOCICLIB
     Dosage: 3 DOSAGE FORM (IN THE MORNING)
     Route: 065
  3. LETROZOLE [Suspect]
     Active Substance: LETROZOLE
     Indication: Product used for unknown indication
     Dosage: UNK
     Route: 065

REACTIONS (30)
  - Lung neoplasm malignant [Unknown]
  - Second primary malignancy [Unknown]
  - Breast cancer recurrent [Unknown]
  - Gastritis [Unknown]
  - Depression [Recovering/Resolving]
  - Fear [Unknown]
  - Hair injury [Unknown]
  - Fatigue [Unknown]
  - Diarrhoea [Unknown]
  - Alopecia [Unknown]
  - Dry skin [Unknown]
  - Cough [Unknown]
  - Increased appetite [Unknown]
  - Agitation [Unknown]
  - Nasal congestion [Unknown]
  - Anxiety [Unknown]
  - Hunger [Unknown]
  - Hypovitaminosis [Unknown]
  - Onychoclasis [Unknown]
  - Discomfort [Unknown]
  - Weight increased [Unknown]
  - Synovial cyst [Unknown]
  - Flatulence [Unknown]
  - Sleep disorder [Unknown]
  - Somnambulism [Unknown]
  - Blood glucose decreased [Unknown]
  - Dizziness [Unknown]
  - Dyspepsia [Unknown]
  - Dyspnoea [Unknown]
  - Abdominal pain upper [Unknown]
